FAERS Safety Report 6261122-6 (Version None)
Quarter: 2009Q3

REPORT INFORMATION
  Report Type: 
  Country: None (occurrence: None)
  Receive Date: 20090709
  Receipt Date: 20090302
  Transmission Date: 20100115
  Serious: No
  Sender: FDA-Public Use
  Company Number: US-KINGPHARMUSA00001-K200900226

PATIENT
  Sex: Female

DRUGS (2)
  1. LEVOXYL [Suspect]
     Dosage: 75 MCG, UNK
     Dates: start: 20000101
  2. LEVOXYL [Suspect]
     Dosage: 175 MCG, UNK

REACTIONS (4)
  - ALOPECIA [None]
  - DRUG DISPENSING ERROR [None]
  - FATIGUE [None]
  - HEART RATE INCREASED [None]
